FAERS Safety Report 9531584 (Version 2)
Quarter: 2013Q4

REPORT INFORMATION
  Report Type: Spontaneous
  Country: DE (occurrence: DE)
  Receive Date: 20130918
  Receipt Date: 20131007
  Transmission Date: 20140711
  Serious: Yes (Hospitalization, Other)
  Sender: FDA-Public Use
  Company Number: DE-ROCHE-1277220

PATIENT
  Sex: Male

DRUGS (6)
  1. ZELBORAF [Suspect]
     Indication: METASTATIC MALIGNANT MELANOMA
     Route: 065
  2. DEXAMETHASON [Concomitant]
     Dosage: 16 MG IN THE MORNING, 8 MG AT NIGHT
     Route: 065
  3. MONO-EMBOLEX [Concomitant]
     Dosage: IN THE MORNING
     Route: 065
  4. PANTOPRAZOL [Concomitant]
     Dosage: IN THE MORNING
     Route: 065
  5. RAMIPRIL [Concomitant]
     Dosage: IN THE MORNING
     Route: 065
  6. METAMIZOL [Concomitant]
     Route: 065

REACTIONS (4)
  - Dyspnoea [Unknown]
  - Local swelling [Unknown]
  - Convulsion [Unknown]
  - Diplopia [Unknown]
